FAERS Safety Report 12154293 (Version 1)
Quarter: 2016Q1

REPORT INFORMATION
  Report Type: Report from Study
  Country: FR (occurrence: FR)
  Receive Date: 20160307
  Receipt Date: 20160307
  Transmission Date: 20160526
  Serious: Yes (Hospitalization)
  Sender: FDA-Public Use
  Company Number: FR-ROCHE-1722024

PATIENT
  Age: 62 Year
  Sex: Male
  Weight: 83 kg

DRUGS (2)
  1. LENALIDOMIDE [Suspect]
     Active Substance: LENALIDOMIDE
     Indication: B-CELL LYMPHOMA
     Dosage: LAST DSOE PRIOR TO SAE ON 27/FEB/2016?TEMPORARILY INTERRUPTED DUE TO EVENT.
     Route: 065
     Dates: start: 20141013
  2. OBINUTUZUMAB [Suspect]
     Active Substance: OBINUTUZUMAB
     Indication: B-CELL LYMPHOMA
     Dosage: LAST DSOE PRIOR TO SAE ON 14/DEC/2015.?TEMPORARILY INTERRUPTED DUE TO EVENT.
     Route: 065
     Dates: start: 20141103

REACTIONS (2)
  - Febrile neutropenia [Recovered/Resolved]
  - Campylobacter infection [Unknown]

NARRATIVE: CASE EVENT DATE: 20160228
